FAERS Safety Report 8197486-6 (Version None)
Quarter: 2012Q1

REPORT INFORMATION
  Report Type: 
  Country: None (occurrence: None)
  Receive Date: 20120309
  Receipt Date: 20120228
  Transmission Date: 20120608
  Serious: Yes (Hospitalization, Other)
  Sender: FDA-Public Use
  Company Number: PT-ROCHE-1044409

PATIENT
  Age: 37 Year
  Sex: Male

DRUGS (6)
  1. PEGASYS [Suspect]
     Route: 058
     Dates: start: 20110804, end: 20110826
  2. RIBAVIRIN [Suspect]
     Route: 048
     Dates: end: 20110826
  3. RIBAVIRIN [Suspect]
     Route: 048
     Dates: start: 20110506
  4. PEGASYS [Suspect]
     Indication: HEPATITIS C
     Route: 058
     Dates: start: 20090326, end: 20090820
  5. PEGASYS [Suspect]
     Route: 058
     Dates: start: 20110506, end: 20110804
  6. RIBAVIRIN [Suspect]
     Indication: HEPATITIS C
     Route: 048
     Dates: start: 20090326, end: 20090820

REACTIONS (4)
  - THROMBOCYTOPENIA [None]
  - PYREXIA [None]
  - MAJOR DEPRESSION [None]
  - CACHEXIA [None]
